FAERS Safety Report 22644367 (Version 2)
Quarter: 2023Q2

REPORT INFORMATION
  Report Type: Spontaneous
  Country: US (occurrence: US)
  Receive Date: 20230627
  Receipt Date: 20230630
  Transmission Date: 20230721
  Serious: Yes (Other)
  Sender: FDA-Public Use
  Company Number: US-002147023-NVSC2023US144568

PATIENT

DRUGS (1)
  1. PLUVICTO [Suspect]
     Active Substance: LUTETIUM LU-177 VIPIVOTIDE TETRAXETAN
     Indication: Product used for unknown indication
     Dosage: UNK (RECEIVED 3 DOSES)
     Route: 065

REACTIONS (3)
  - Metastases to liver [Unknown]
  - Neuroendocrine tumour [Unknown]
  - Treatment failure [Unknown]

NARRATIVE: CASE EVENT DATE: 20230213
